FAERS Safety Report 16887289 (Version 2)
Quarter: 2019Q4

REPORT INFORMATION
  Report Type: Spontaneous
  Country: IT (occurrence: IT)
  Receive Date: 20191004
  Receipt Date: 20191010
  Transmission Date: 20200122
  Serious: Yes (Other)
  Sender: FDA-Public Use
  Company Number: IT-JNJFOC-20191001211

PATIENT
  Age: 39 Year
  Sex: Male

DRUGS (4)
  1. EZETROL [Concomitant]
     Active Substance: EZETIMIBE
  2. DIBASE [Concomitant]
     Active Substance: CHOLECALCIFEROL
  3. SYMTUZA [Suspect]
     Active Substance: COBICISTAT\DARUNAVIR\EMTRICITABINE\TENOFOVIR ALAFENAMIDE
     Indication: HIV INFECTION
     Route: 048
     Dates: start: 20190303, end: 20190904
  4. OLPRESS [Concomitant]
     Active Substance: OLMESARTAN MEDOXOMIL

REACTIONS (1)
  - Dyslipidaemia [Unknown]

NARRATIVE: CASE EVENT DATE: 20190904
